FAERS Safety Report 21032393 (Version 2)
Quarter: 2024Q2

REPORT INFORMATION
  Report Type: Spontaneous
  Country: BE (occurrence: BE)
  Receive Date: 20220701
  Receipt Date: 20240627
  Transmission Date: 20240716
  Serious: Yes (Other)
  Sender: FDA-Public Use
  Company Number: BE-ALKEM LABORATORIES LIMITED-BE-ALKEM-2022-05221

PATIENT

DRUGS (1)
  1. VENLAFAXINE [Suspect]
     Active Substance: VENLAFAXINE HYDROCHLORIDE
     Indication: Depression
     Dosage: 4200 MILLIGRAM (HISTORY OF DRUG USE 6 HOUR)
     Route: 065

REACTIONS (4)
  - Electrocardiogram QT prolonged [Unknown]
  - Cardiac failure acute [Unknown]
  - Acute kidney injury [Recovered/Resolved]
  - Overdose [Unknown]
